FAERS Safety Report 9517949 (Version 1)
Quarter: 2013Q3

REPORT INFORMATION
  Report Type: Spontaneous
  Country: GB (occurrence: None)
  Receive Date: 20130910
  Receipt Date: 20130910
  Transmission Date: 20140515
  Serious: Yes (Hospitalization)
  Sender: FDA-Public Use
  Company Number: AUR-APL-2013-07389

PATIENT
  Age: 54 Year
  Sex: Female

DRUGS (3)
  1. MIRTAZAPINE (MIRTAZAPINE) [Suspect]
     Indication: DEPRESSION
     Route: 048
     Dates: end: 2012
  2. DIAZEPAM (DIAZEPAM) [Concomitant]
  3. PRIADEL (LITHIUM CARBONATE) [Concomitant]

REACTIONS (2)
  - Pancreatitis [None]
  - Liver disorder [None]
